FAERS Safety Report 18492277 (Version 1)
Quarter: 2020Q4

REPORT INFORMATION
  Report Type: Spontaneous
  Country: US (occurrence: US)
  Receive Date: 20201111
  Receipt Date: 20201111
  Transmission Date: 20210114
  Serious: No
  Sender: FDA-Public Use
  Company Number: US-PFIZER INC-2020442355

PATIENT
  Age: 63 Year
  Sex: Female

DRUGS (2)
  1. MELOXICAM. [Suspect]
     Active Substance: MELOXICAM
     Indication: FIBROMYALGIA
     Dosage: 40 MG, 1X/DAY (40.0 MG MILLIGRAM(S) ( 40 MG MILLIGRAM(S) ), 1 IN 1 DAYS))
     Route: 048
  2. LYRICA [Suspect]
     Active Substance: PREGABALIN
     Indication: FIBROMYALGIA
     Dosage: 50 MG, 2X/DAY (50 MG MILLIGRAM(S) ),1IN12HOURS))
     Route: 048

REACTIONS (2)
  - Pain [Unknown]
  - Malaise [Unknown]
